FAERS Safety Report 8917713 (Version 2)
Quarter: 2013Q1

REPORT INFORMATION
  Report Type: Spontaneous
  Country: US (occurrence: US)
  Receive Date: 20121119
  Receipt Date: 20130322
  Transmission Date: 20140127
  Serious: Yes (Hospitalization)
  Sender: FDA-Public Use
  Company Number: US-UCBSA-070959

PATIENT
  Age: 22 Year
  Sex: Female

DRUGS (2)
  1. CIMZIA [Suspect]
     Indication: CROHN^S DISEASE
     Dosage: MAINTENANCE
     Dates: start: 20120706
  2. CIMZIA [Suspect]
     Indication: CROHN^S DISEASE
     Dates: start: 20100701, end: 20110915

REACTIONS (1)
  - Abdominal discomfort [Not Recovered/Not Resolved]
